FAERS Safety Report 7897158-9 (Version None)
Quarter: 2011Q4

REPORT INFORMATION
  Report Type: 
  Country: None (occurrence: None)
  Receive Date: 20111104
  Receipt Date: 20111104
  Transmission Date: 20120403
  Serious: Yes (Other)
  Sender: FDA-Public Use
  Company Number: None

PATIENT
  Sex: Female
  Weight: 52.1637 kg

DRUGS (1)
  1. MOVIPREP [Suspect]
     Indication: COLONOSCOPY
     Dosage: 32 OZ. 1 MOUTH
     Route: 048
     Dates: start: 20111019

REACTIONS (2)
  - PAIN [None]
  - PRODUCT LABEL CONFUSION [None]
